FAERS Safety Report 7656618-6 (Version None)
Quarter: 2011Q3

REPORT INFORMATION
  Report Type: 
  Country: None (occurrence: None)
  Receive Date: 20110804
  Receipt Date: 20110802
  Transmission Date: 20111222
  Serious: Yes (Other)
  Sender: FDA-Public Use
  Company Number: US-PFIZER INC-2011091991

PATIENT
  Sex: Female
  Weight: 54 kg

DRUGS (5)
  1. PREMPRO [Suspect]
     Indication: HORMONE REPLACEMENT THERAPY
     Dosage: UNK
     Route: 048
     Dates: start: 19960101, end: 20020101
  2. PREMPRO [Suspect]
     Dosage: UNK
     Route: 048
     Dates: start: 20060101, end: 20080101
  3. PREMARIN [Suspect]
     Indication: HORMONE REPLACEMENT THERAPY
     Dosage: UNK
     Route: 048
     Dates: start: 19940101, end: 19960101
  4. PREMARIN [Suspect]
     Dosage: UNK
     Route: 048
     Dates: start: 20020101, end: 20060101
  5. PROMETRIUM [Suspect]
     Indication: HORMONE REPLACEMENT THERAPY
     Dosage: UNK
     Dates: start: 20020101, end: 20060101

REACTIONS (1)
  - BREAST CANCER FEMALE [None]
